FAERS Safety Report 14389286 (Version 2)
Quarter: 2019Q1

REPORT INFORMATION
  Report Type: Spontaneous
  Country: US (occurrence: US)
  Receive Date: 20180115
  Receipt Date: 20190123
  Transmission Date: 20190417
  Serious: Yes (Other)
  Sender: FDA-Public Use
  Company Number: US-SA-2017SA240346

PATIENT
  Age: 57 Year
  Sex: Female
  Weight: 165.7 kg

DRUGS (24)
  1. TAXOTERE [Suspect]
     Active Substance: DOCETAXEL
     Indication: BREAST CANCER FEMALE
     Dosage: 120 MG, Q3W
     Route: 042
     Dates: start: 20100301, end: 20100301
  2. CYCLOPHOSPHAMIDE. [Concomitant]
     Active Substance: CYCLOPHOSPHAMIDE
     Dosage: UNK UNK,UNK
     Route: 065
     Dates: start: 20100301, end: 20100301
  3. CYCLOPHOSPHAMIDE. [Concomitant]
     Active Substance: CYCLOPHOSPHAMIDE
     Dosage: UNK UNK,UNK
     Route: 065
     Dates: start: 20100630, end: 20100630
  4. FLUTICASONE;VILANTEROL [Concomitant]
     Dosage: UNK UNK, UNK
     Route: 065
  5. OFLOXACIN. [Concomitant]
     Active Substance: OFLOXACIN
     Dosage: UNK UNK, UNK
     Route: 065
  6. TAXOTERE [Suspect]
     Active Substance: DOCETAXEL
     Dosage: 120 MG, Q3W
     Route: 042
     Dates: start: 20100630, end: 20100630
  7. DOXORUBICIN [Concomitant]
     Active Substance: DOXORUBICIN
     Dosage: UNK UNK,UNK
     Route: 065
     Dates: start: 20100630, end: 20100630
  8. CELECOXIB. [Concomitant]
     Active Substance: CELECOXIB
     Dosage: UNK UNK, UNK
     Route: 065
  9. CYCLOBENZAPRINE. [Concomitant]
     Active Substance: CYCLOBENZAPRINE
     Dosage: UNK UNK, UNK
     Route: 065
  10. BUDESONIDE;FORMOTEROL [Concomitant]
     Dosage: UNK UNK, UNK
     Route: 065
  11. TIZANIDINE. [Concomitant]
     Active Substance: TIZANIDINE
     Dosage: UNK UNK, UNK
     Route: 065
  12. ASPIRIN [ACETYLSALICYLIC ACID] [Concomitant]
     Active Substance: ASPIRIN
     Dosage: UNK UNK, UNK
     Route: 065
  13. DIPHENOXYLATE/ATROPINE [Concomitant]
     Active Substance: ATROPINE\DIPHENOXYLATE
     Dosage: UNK UNK, UNK
     Route: 065
  14. METHYLPREDNISOLONE ACETATE. [Concomitant]
     Active Substance: METHYLPREDNISOLONE ACETATE
     Dosage: UNK UNK, UNK
     Route: 065
  15. TRAZODONE [Concomitant]
     Active Substance: TRAZODONE HYDROCHLORIDE
     Dosage: UNK UNK, UNK
     Route: 065
  16. DOXORUBICIN [Concomitant]
     Active Substance: DOXORUBICIN
     Dosage: UNK UNK,UNK
     Route: 065
     Dates: start: 20100301, end: 20100301
  17. CYTOXAN [Concomitant]
     Active Substance: CYCLOPHOSPHAMIDE
  18. ONDANSETRON [Concomitant]
     Active Substance: ONDANSETRON
     Dosage: UNK UNK, UNK
     Route: 065
  19. ALPRAZOLAM. [Concomitant]
     Active Substance: ALPRAZOLAM
     Dosage: UNK UNK, UNK
     Route: 065
  20. PROLIA [Concomitant]
     Active Substance: DENOSUMAB
     Dosage: UNK UNK, UNK
     Route: 065
  21. TRIAMCINOLONE [Concomitant]
     Active Substance: TRIAMCINOLONE
     Dosage: UNK UNK, UNK
     Route: 065
  22. ANASTROZOLE. [Concomitant]
     Active Substance: ANASTROZOLE
  23. PREDNISONE. [Concomitant]
     Active Substance: PREDNISONE
     Dosage: UNK UNK, UNK
     Route: 065
  24. VENTOLINE [SALBUTAMOL] [Concomitant]
     Active Substance: ALBUTEROL SULFATE
     Dosage: UNK UNK, UNK
     Route: 065

REACTIONS (2)
  - Psychological trauma [Unknown]
  - Alopecia [Recovering/Resolving]

NARRATIVE: CASE EVENT DATE: 201010
